FAERS Safety Report 10058513 (Version 1)
Quarter: 2014Q2

REPORT INFORMATION
  Report Type: Spontaneous
  Country: US (occurrence: US)
  Receive Date: 20140404
  Receipt Date: 20140404
  Transmission Date: 20141212
  Serious: Yes (Hospitalization, Other)
  Sender: FDA-Public Use
  Company Number: US-BAYER-2014-049516

PATIENT
  Age: 36 Year
  Sex: Female
  Weight: 144.67 kg

DRUGS (3)
  1. YAZ [Suspect]
     Dosage: UNK
  2. ALBUTEROL [Concomitant]
     Indication: ASTHMA
     Dosage: 2 TO 3 TIMES A WEEK
  3. ADVAIR [Concomitant]
     Indication: ASTHMA
     Dosage: ONE PUFF TWICE A DAY

REACTIONS (2)
  - Pulmonary embolism [None]
  - Deep vein thrombosis [None]
